FAERS Safety Report 9170541 (Version 5)
Quarter: 2013Q4

REPORT INFORMATION
  Report Type: Spontaneous
  Country: US (occurrence: US)
  Receive Date: 20130319
  Receipt Date: 20131008
  Transmission Date: 20140711
  Serious: Yes (Hospitalization, Congenital Anomaly, Other)
  Sender: FDA-Public Use
  Company Number: US-JNJFOC-20130310451

PATIENT
  Sex: Male

DRUGS (16)
  1. TOPAMAX [Suspect]
     Indication: FOETAL EXPOSURE DURING PREGNANCY
     Route: 064
     Dates: start: 201005, end: 201011
  2. MIRALAX [Suspect]
     Indication: FOETAL EXPOSURE DURING PREGNANCY
     Route: 064
  3. DULCOLAX [Suspect]
     Indication: FOETAL EXPOSURE DURING PREGNANCY
     Route: 064
  4. LEXAPRO [Suspect]
     Indication: FOETAL EXPOSURE DURING PREGNANCY
     Route: 064
  5. REGLAN [Suspect]
     Indication: FOETAL EXPOSURE DURING PREGNANCY
     Route: 064
  6. ZOFRAN [Suspect]
     Indication: FOETAL EXPOSURE DURING PREGNANCY
     Route: 064
  7. METHADONE [Suspect]
     Indication: FOETAL EXPOSURE DURING PREGNANCY
     Route: 064
  8. PERCOCET [Suspect]
     Indication: FOETAL EXPOSURE DURING PREGNANCY
     Route: 064
  9. LORTAB [Suspect]
     Indication: FOETAL EXPOSURE DURING PREGNANCY
     Route: 064
  10. CYMBALTA [Suspect]
     Indication: FOETAL EXPOSURE DURING PREGNANCY
     Route: 064
  11. STADOL [Suspect]
     Indication: FOETAL EXPOSURE DURING PREGNANCY
     Route: 064
  12. DILAUDID [Suspect]
     Indication: FOETAL EXPOSURE DURING PREGNANCY
     Route: 064
  13. NEURONTIN [Suspect]
     Indication: FOETAL EXPOSURE DURING PREGNANCY
     Route: 064
  14. PROTONIX [Suspect]
     Indication: FOETAL EXPOSURE DURING PREGNANCY
     Route: 064
  15. BENTYL [Suspect]
     Indication: FOETAL EXPOSURE DURING PREGNANCY
     Route: 064
  16. PRENATAL VITAMINS [Concomitant]
     Indication: FOETAL EXPOSURE DURING PREGNANCY
     Route: 064

REACTIONS (17)
  - Drug withdrawal syndrome neonatal [Unknown]
  - Deformity [Unknown]
  - Skull malformation [Not Recovered/Not Resolved]
  - Chordee [Not Recovered/Not Resolved]
  - Penile torsion [Unknown]
  - Prepuce redundant [Unknown]
  - Tachypnoea [Unknown]
  - Eustachian tube dysfunction [Unknown]
  - Otitis media acute [Recovering/Resolving]
  - Periventricular leukomalacia [Unknown]
  - Encephalopathy [Recovering/Resolving]
  - Developmental delay [Recovering/Resolving]
  - Premature baby [Not Recovered/Not Resolved]
  - Pain [Unknown]
  - Emotional distress [Unknown]
  - Social avoidant behaviour [Unknown]
  - Muscular weakness [Recovering/Resolving]
